FAERS Safety Report 13393522 (Version 1)
Quarter: 2017Q1

REPORT INFORMATION
  Report Type: Spontaneous
  Country: US (occurrence: US)
  Receive Date: 20170331
  Receipt Date: 20170331
  Transmission Date: 20170429
  Serious: No
  Sender: FDA-Public Use
  Company Number: US-SEPTODONT-201603747

PATIENT

DRUGS (2)
  1. BENZOCAINE. [Concomitant]
     Active Substance: BENZOCAINE
  2. LIDOCAINE HYDROCHLORIDE 2% WITH EPINEPHRINE 1:100,000 INJECTION [Suspect]
     Active Substance: EPINEPHRINE\LIDOCAINE HYDROCHLORIDE
     Indication: LOCAL ANAESTHESIA
     Dosage: 3-4 CARTRIDGES ADMINSITERED VIA NERVE BLOCK WITH COVIDIEN MONOJECT 27G LONG 1-1/4^ NEEDLE
     Route: 004

REACTIONS (1)
  - Drug ineffective [Recovered/Resolved]
